FAERS Safety Report 8829290 (Version 2)
Quarter: 2014Q3

REPORT INFORMATION
  Report Type: Report from Study
  Country: US (occurrence: US)
  Receive Date: 20121008
  Receipt Date: 20140822
  Transmission Date: 20150326
  Serious: Yes (Hospitalization, Other)
  Sender: FDA-Public Use
  Company Number: US-ROCHE-1136813

PATIENT
  Sex: Female

DRUGS (5)
  1. VINCRISTINE [Concomitant]
     Active Substance: VINCRISTINE
  2. RITUXAN [Suspect]
     Active Substance: RITUXIMAB
     Indication: MYELODYSPLASTIC SYNDROME
     Route: 042
     Dates: start: 20000421
  3. RITUXAN [Suspect]
     Active Substance: RITUXIMAB
     Indication: WALDENSTROM^S MACROGLOBULINAEMIA
  4. EPOGEN [Concomitant]
     Active Substance: ERYTHROPOIETIN
  5. PREDNISONE. [Concomitant]
     Active Substance: PREDNISONE

REACTIONS (8)
  - Asthenia [Unknown]
  - Neuropathy peripheral [Unknown]
  - Localised infection [Unknown]
  - Contusion [Unknown]
  - Lung infiltration [Unknown]
  - Off label use [Unknown]
  - Constipation [Unknown]
  - Blindness [Unknown]
